FAERS Safety Report 6851670-X (Version None)
Quarter: 2010Q3

REPORT INFORMATION
  Report Type: 
  Country: None (occurrence: None)
  Receive Date: 20100717
  Receipt Date: 20080123
  Transmission Date: 20110219
  Serious: No
  Sender: FDA-Public Use
  Company Number: US-PFIZER INC-2008006818

PATIENT
  Sex: Female
  Weight: 48.636 kg

DRUGS (5)
  1. CHANTIX [Suspect]
     Indication: SMOKING CESSATION THERAPY
     Dates: start: 20071218
  2. DRUG, UNSPECIFIED [Concomitant]
     Indication: ARTHRITIS
  3. VICODIN [Concomitant]
  4. AMBIEN [Concomitant]
  5. VITAMINS [Concomitant]

REACTIONS (2)
  - ABNORMAL DREAMS [None]
  - MIDDLE INSOMNIA [None]
